FAERS Safety Report 23103790 (Version 2)
Quarter: 2024Q1

REPORT INFORMATION
  Report Type: Spontaneous
  Country: US (occurrence: US)
  Receive Date: 20231025
  Receipt Date: 20240116
  Transmission Date: 20240409
  Serious: No
  Sender: FDA-Public Use
  Company Number: US-PFIZER INC-202300334721

PATIENT
  Age: 72 Year
  Sex: Female
  Weight: 113.38 kg

DRUGS (2)
  1. PAXLOVID [Suspect]
     Active Substance: NIRMATRELVIR\RITONAVIR
     Indication: COVID-19 treatment
     Dosage: UNK, 2X/DAY
     Dates: start: 20231010, end: 20231014
  2. NALTREXONE [Concomitant]
     Active Substance: NALTREXONE
     Dates: start: 20220914

REACTIONS (6)
  - Oral mucosal blistering [Not Recovered/Not Resolved]
  - Oral mucosal erythema [Not Recovered/Not Resolved]
  - Lip blister [Not Recovered/Not Resolved]
  - Lip erythema [Not Recovered/Not Resolved]
  - Oral discomfort [Unknown]
  - Symptom recurrence [Not Recovered/Not Resolved]

NARRATIVE: CASE EVENT DATE: 20231012
